FAERS Safety Report 11695395 (Version 1)
Quarter: 2015Q4

REPORT INFORMATION
  Report Type: Spontaneous
  Country: CA (occurrence: CA)
  Receive Date: 20151104
  Receipt Date: 20151104
  Transmission Date: 20160304
  Serious: Yes (Death)
  Sender: FDA-Public Use
  Company Number: CA-ROCHE-1654606

PATIENT
  Age: 6 Year
  Sex: Male
  Weight: 17 kg

DRUGS (2)
  1. ACTEMRA [Suspect]
     Active Substance: TOCILIZUMAB
     Indication: JUVENILE IDIOPATHIC ARTHRITIS
     Route: 065
  2. METHOTREXATE [Concomitant]
     Active Substance: METHOTREXATE

REACTIONS (8)
  - Shock [Fatal]
  - Disseminated intravascular coagulation [Fatal]
  - Leukopenia [Fatal]
  - Rhabdomyolysis [Fatal]
  - Multi-organ failure [Fatal]
  - Hepatic failure [Fatal]
  - Renal failure [Fatal]
  - Hyperferritinaemia [Fatal]
